FAERS Safety Report 19402776 (Version 1)
Quarter: 2021Q2

REPORT INFORMATION
  Report Type: Spontaneous
  Country: AU (occurrence: AU)
  Receive Date: 20210610
  Receipt Date: 20210610
  Transmission Date: 20210717
  Serious: No
  Sender: FDA-Public Use
  Company Number: AU-LUPIN PHARMACEUTICALS INC.-2021-09110

PATIENT
  Age: 36 Year
  Sex: Male

DRUGS (26)
  1. ESCITALOPRAM [Interacting]
     Active Substance: ESCITALOPRAM OXALATE
     Dosage: 20 MILLIGRAM
     Route: 065
     Dates: start: 20160307
  2. ESCITALOPRAM [Interacting]
     Active Substance: ESCITALOPRAM OXALATE
     Dosage: 10 MILLIGRAM
     Route: 065
     Dates: start: 20171017
  3. ESCITALOPRAM [Interacting]
     Active Substance: ESCITALOPRAM OXALATE
     Dosage: 10 MILLIGRAM
     Route: 065
     Dates: start: 20180306
  4. CLOZAPINE. [Interacting]
     Active Substance: CLOZAPINE
     Indication: SCHIZOPHRENIA
     Dosage: 300 MILLIGRAM
     Route: 065
     Dates: start: 2003
  5. CLOZAPINE. [Interacting]
     Active Substance: CLOZAPINE
     Dosage: 300 MILLIGRAM
     Route: 065
     Dates: start: 20180306
  6. CLOZAPINE. [Interacting]
     Active Substance: CLOZAPINE
     Dosage: 300 MILLIGRAM
     Route: 065
     Dates: start: 20180405
  7. CLOZAPINE. [Interacting]
     Active Substance: CLOZAPINE
     Dosage: 300 MILLIGRAM
     Route: 065
     Dates: start: 20161114
  8. CLOZAPINE. [Interacting]
     Active Substance: CLOZAPINE
     Dosage: 300 MILLIGRAM
     Route: 065
     Dates: start: 20180205
  9. CLOZAPINE. [Interacting]
     Active Substance: CLOZAPINE
     Dosage: 300 MILLIGRAM
     Route: 065
     Dates: start: 20180416
  10. CITALOPRAM [Interacting]
     Active Substance: CITALOPRAM HYDROBROMIDE
     Dosage: 20 MILLIGRAM, QD
     Route: 065
     Dates: start: 20140411
  11. CLOZAPINE. [Interacting]
     Active Substance: CLOZAPINE
     Dosage: 300 MILLIGRAM
     Route: 065
     Dates: start: 20171017
  12. CLOZAPINE. [Interacting]
     Active Substance: CLOZAPINE
     Dosage: 300 MILLIGRAM
     Route: 065
     Dates: start: 20171212
  13. CLOZAPINE. [Interacting]
     Active Substance: CLOZAPINE
     Dosage: 300 MILLIGRAM
     Route: 065
     Dates: start: 20180326
  14. CLOZAPINE. [Interacting]
     Active Substance: CLOZAPINE
     Dosage: 300 MILLIGRAM
     Route: 065
     Dates: start: 20141215
  15. ESCITALOPRAM [Interacting]
     Active Substance: ESCITALOPRAM OXALATE
     Dosage: 20 MILLIGRAM
     Route: 065
     Dates: start: 20161114
  16. CLOZAPINE. [Interacting]
     Active Substance: CLOZAPINE
     Dosage: 350 MILLIGRAM
     Route: 065
     Dates: start: 20131126
  17. CLOZAPINE. [Interacting]
     Active Substance: CLOZAPINE
     Dosage: 300 MILLIGRAM
     Route: 065
     Dates: start: 20150728
  18. CLOZAPINE. [Interacting]
     Active Substance: CLOZAPINE
     Dosage: 300 MILLIGRAM
     Route: 065
     Dates: start: 20170626
  19. ESCITALOPRAM [Interacting]
     Active Substance: ESCITALOPRAM OXALATE
     Dosage: 10 MILLIGRAM
     Route: 065
     Dates: start: 20170626
  20. ESCITALOPRAM [Interacting]
     Active Substance: ESCITALOPRAM OXALATE
     Dosage: 10 MILLIGRAM
     Route: 065
     Dates: start: 20171212
  21. ESCITALOPRAM [Interacting]
     Active Substance: ESCITALOPRAM OXALATE
     Dosage: 10 MILLIGRAM
     Route: 065
     Dates: start: 20180205
  22. CLOZAPINE. [Interacting]
     Active Substance: CLOZAPINE
     Dosage: 300 MILLIGRAM
     Route: 065
     Dates: start: 20140411
  23. CLOZAPINE. [Interacting]
     Active Substance: CLOZAPINE
     Dosage: 300 MILLIGRAM
     Route: 065
     Dates: start: 20140927
  24. CLOZAPINE. [Interacting]
     Active Substance: CLOZAPINE
     Dosage: 300 MILLIGRAM
     Route: 065
     Dates: start: 20160307
  25. ESCITALOPRAM [Suspect]
     Active Substance: ESCITALOPRAM OXALATE
     Indication: DEPRESSION
     Dosage: 20 MILLIGRAM
     Route: 065
     Dates: start: 20150728
  26. CITALOPRAM [Interacting]
     Active Substance: CITALOPRAM HYDROBROMIDE
     Indication: DEPRESSION
     Dosage: 20 MILLIGRAM, QD
     Route: 065
     Dates: start: 20131126

REACTIONS (3)
  - Antipsychotic drug level increased [Recovering/Resolving]
  - Salivary hypersecretion [Recovering/Resolving]
  - Drug interaction [Unknown]
